FAERS Safety Report 10894433 (Version 5)
Quarter: 2020Q1

REPORT INFORMATION
  Report Type: Spontaneous
  Country: US (occurrence: US)
  Receive Date: 20150306
  Receipt Date: 20200217
  Transmission Date: 20200409
  Serious: Yes (Hospitalization, Other)
  Sender: FDA-Public Use
  Company Number: US-GLAXOSMITHKLINE-US2015GSK029428

PATIENT
  Age: 57 Year
  Sex: Female

DRUGS (3)
  1. SORIATANE [Suspect]
     Active Substance: ACITRETIN
     Dosage: 25 MG, BID IN SUMMER MONTHS
  2. SORIATANE [Suspect]
     Active Substance: ACITRETIN
     Indication: KERATOSIS FOLLICULAR
     Dosage: 25 MG, QD IN WINTER MONTHS
     Route: 048
  3. LEXAPRO [Concomitant]
     Active Substance: ESCITALOPRAM OXALATE
     Indication: PRODUCT USED FOR UNKNOWN INDICATION
     Dosage: UNK

REACTIONS (2)
  - Therapeutic response unexpected [Unknown]
  - Cerebrovascular accident [Recovering/Resolving]

NARRATIVE: CASE EVENT DATE: 20150227
